FAERS Safety Report 8492487-2 (Version None)
Quarter: 2012Q3

REPORT INFORMATION
  Report Type: 
  Country: None (occurrence: None)
  Receive Date: 20120706
  Receipt Date: 20120629
  Transmission Date: 20120928
  Serious: Yes (Other)
  Sender: FDA-Public Use
  Company Number: DE-PFIZER INC-2012156571

PATIENT
  Age: 15 Month
  Sex: Male

DRUGS (2)
  1. BENEFIX [Suspect]
     Indication: FACTOR IX DEFICIENCY
     Dosage: AS NEEDED
     Dates: start: 20120101
  2. BENEFIX [Suspect]
     Dosage: 1250 IU (750 IU AND 500 IU), 1X/DAY
     Dates: start: 20120601

REACTIONS (1)
  - FACTOR IX INHIBITION [None]
